FAERS Safety Report 19805046 (Version 2)
Quarter: 2021Q3

REPORT INFORMATION
  Report Type: Spontaneous
  Country: IT (occurrence: IT)
  Receive Date: 20210908
  Receipt Date: 20210915
  Transmission Date: 20211014
  Serious: Yes (Hospitalization, Other)
  Sender: FDA-Public Use
  Company Number: IT-CELLTRION INC.-2021IT011988

PATIENT

DRUGS (9)
  1. CYCLOPHOSPHAMIDE. [Concomitant]
     Active Substance: CYCLOPHOSPHAMIDE
     Indication: B-CELL LYMPHOMA
     Dosage: RECEIVED 6 COURSES OF R?CHOP
     Route: 065
     Dates: end: 202002
  2. HYDROXYCHLOROQUINE [Concomitant]
     Active Substance: HYDROXYCHLOROQUINE
     Indication: COVID-19 PNEUMONIA
     Dosage: UNK
     Route: 065
     Dates: start: 2020
  3. CHOP [Concomitant]
     Active Substance: CYCLOPHOSPHAMIDE\DOXORUBICIN\PREDNISONE\VINCRISTINE
     Indication: B-CELL LYMPHOMA
     Dosage: UNK
     Route: 065
     Dates: start: 202002
  4. VINCRISTINE [Suspect]
     Active Substance: VINCRISTINE
     Indication: B-CELL LYMPHOMA
     Dosage: RECEIVED SIX COURSES OF R?CHOP
     Route: 065
     Dates: end: 202002
  5. HYPERIMMUNE PLASMA [Concomitant]
     Indication: COVID-19 PNEUMONIA
     Dosage: 210 ML, RECEIVED THREE INFUSIONS (EACH 210ML ON AN ALTERNATE DAY BASIS)
     Route: 050
     Dates: start: 2020
  6. RITUXIMAB. [Suspect]
     Active Substance: RITUXIMAB
     Dosage: 6 COURSES
     Route: 065
     Dates: start: 202002
  7. DOXORUBICIN [Suspect]
     Active Substance: DOXORUBICIN
     Indication: B-CELL LYMPHOMA
     Dosage: RECEIVED SIX COURSES OF R?CHOP
     Route: 065
     Dates: end: 202002
  8. PREDNISONE. [Suspect]
     Active Substance: PREDNISONE
     Indication: B-CELL LYMPHOMA
     Dosage: RECEIVED SIX COURSES OF R?CHOP
     Route: 065
     Dates: end: 202002
  9. RITUXIMAB. [Suspect]
     Active Substance: RITUXIMAB
     Indication: B-CELL LYMPHOMA
     Dosage: RECEIVED 6 COURSES OF R?CHOP
     Route: 065
     Dates: end: 202002

REACTIONS (3)
  - COVID-19 pneumonia [Recovering/Resolving]
  - Secondary immunodeficiency [Unknown]
  - Off label use [Unknown]

NARRATIVE: CASE EVENT DATE: 2020
